FAERS Safety Report 8173068-7 (Version None)
Quarter: 2012Q1

REPORT INFORMATION
  Report Type: 
  Country: None (occurrence: None)
  Receive Date: 20120229
  Receipt Date: 20120221
  Transmission Date: 20120608
  Serious: Yes (Death, Life-Threatening, Hospitalization)
  Sender: FDA-Public Use
  Company Number: FR-UCBSA-049701

PATIENT
  Age: 51 Year
  Sex: Female

DRUGS (5)
  1. INNOHEP [Concomitant]
     Indication: THROMBOSIS
     Dosage: 14000 IU ANTI XA/0.7 ML
  2. CRIZOTINIB [Suspect]
     Indication: LUNG NEOPLASM MALIGNANT
     Route: 048
     Dates: start: 20110729, end: 20111101
  3. KEPPRA [Suspect]
     Indication: CONVULSION PROPHYLAXIS
     Route: 048
     Dates: end: 20111201
  4. PRAZEPAM [Concomitant]
     Indication: ANXIETY
     Dosage: 15 MG/ML
     Route: 048
  5. AUGMENTIN '125' [Concomitant]
     Indication: LUNG INFECTION
     Dates: start: 20111126

REACTIONS (3)
  - RENAL FAILURE ACUTE [None]
  - PANCREATITIS ACUTE [None]
  - LUNG INFECTION [None]
